FAERS Safety Report 5305274-0 (Version None)
Quarter: 2007Q1

REPORT INFORMATION
  Report Type: 
  Country: None (occurrence: None)
  Receive Date: 20070201
  Receipt Date: 20061110
  Transmission Date: 20070707
  Serious: No
  Sender: FDA-Public Use
  Company Number: 2006PV024986

PATIENT
  Age: 38 Year
  Sex: Male

DRUGS (6)
  1. BYETTA [Suspect]
     Indication: DIABETES MELLITUS NON-INSULIN-DEPENDENT
     Dosage: 5 MCG;BID;SC
     Route: 058
     Dates: start: 20061108
  2. METFORMIN HCL [Concomitant]
  3. GLYBURIDE [Concomitant]
  4. GLYBURIDE AND METFORMIN HCL [Concomitant]
  5. COMBINATION SR [Concomitant]
  6. ACTOS [Concomitant]

REACTIONS (1)
  - NAUSEA [None]
